FAERS Safety Report 5302232-7 (Version None)
Quarter: 2007Q1

REPORT INFORMATION
  Report Type: 
  Country: None (occurrence: None)
  Receive Date: 20070201
  Receipt Date: 20061211
  Transmission Date: 20070707
  Serious: No
  Sender: FDA-Public Use
  Company Number: 2006PV026797

PATIENT
  Age: 61 Year
  Sex: Female
  Weight: 100.6985 kg

DRUGS (11)
  1. BYETTA [Suspect]
     Indication: DIABETES MELLITUS NON-INSULIN-DEPENDENT
     Dosage: SEE IMAGE
     Route: 058
  2. METFORMIN HCL [Concomitant]
  3. AMARYL [Concomitant]
  4. AVANDIA [Concomitant]
  5. DIOVAN HCT [Concomitant]
  6. ISOSORBIDE [Concomitant]
  7. SYNTHROID [Concomitant]
  8. ESTROVEN [Concomitant]
  9. IRON [Concomitant]
  10. ASPIRIN [Concomitant]
  11. COREG [Concomitant]

REACTIONS (6)
  - BLOOD GLUCOSE INCREASED [None]
  - INCREASED APPETITE [None]
  - INJECTION SITE DISCOMFORT [None]
  - INJECTION SITE EXTRAVASATION [None]
  - SENSATION OF HEAVINESS [None]
  - WEIGHT DECREASED [None]
